FAERS Safety Report 22373033 (Version 1)
Quarter: 2023Q2

REPORT INFORMATION
  Report Type: Spontaneous
  Country: US (occurrence: US)
  Receive Date: 20230526
  Receipt Date: 20230526
  Transmission Date: 20230721
  Serious: No
  Sender: FDA-Public Use
  Company Number: US-UPSHER-SMITH LABORATORIES, LLC-2022USL00349

PATIENT
  Sex: Male

DRUGS (6)
  1. PACERONE [Suspect]
     Active Substance: AMIODARONE HYDROCHLORIDE
     Indication: Atrial fibrillation
     Dosage: 200 MG, 1X/DAY EVERY NIGHT WHEN HE GOES TO BED
     Route: 048
     Dates: start: 20071229, end: 2013
  2. PACERONE [Suspect]
     Active Substance: AMIODARONE HYDROCHLORIDE
     Dosage: 100 MG, 1X/DAY EVERY NIGHT WHEN HE GOES TO BED
     Route: 048
     Dates: start: 2013
  3. MAG 64 [Concomitant]
     Dosage: 64 MG, 1X/DAY IN PM
  4. LEVOTHYROXINE [Concomitant]
     Active Substance: LEVOTHYROXINE
     Dosage: 75 ?G, 1X/DAY IN AM
  5. ASPIRIN [Concomitant]
     Active Substance: ASPIRIN
     Dosage: 82 MG, 1X/DAY IN AM
  6. VITAMIN D3 [Concomitant]
     Active Substance: CHOLECALCIFEROL
     Dosage: 50 ?G, 1X/DAY IN AM

REACTIONS (1)
  - Tremor [Not Recovered/Not Resolved]

NARRATIVE: CASE EVENT DATE: 20070101
